FAERS Safety Report 10284653 (Version 1)
Quarter: 2014Q3

REPORT INFORMATION
  Report Type: Spontaneous
  Country: US (occurrence: None)
  Receive Date: 20140703
  Receipt Date: 20140703
  Transmission Date: 20150326
  Serious: Yes (Death, Life-Threatening, Hospitalization, Other)
  Sender: FDA-Public Use
  Company Number: None

PATIENT
  Age: 68 Year
  Sex: Male
  Weight: 107 kg

DRUGS (20)
  1. NORVASC [Concomitant]
     Active Substance: AMLODIPINE BESYLATE
  2. COUMADIN [Concomitant]
     Active Substance: WARFARIN SODIUM
  3. FERROUS FUMARATE [Concomitant]
     Active Substance: FERROUS FUMARATE
  4. INVOKANA [Suspect]
     Active Substance: CANAGLIFLOZIN
     Indication: TYPE 2 DIABETES MELLITUS
     Dosage: LESS THAN 1 MONTH?ONE TABLET QD ORAL
     Route: 048
  5. LUMIGAN [Concomitant]
     Active Substance: BIMATOPROST
  6. NYSTATIN OINTMENT [Concomitant]
  7. ASPIRIN. [Concomitant]
     Active Substance: ASPIRIN
  8. FOLIC ACID. [Concomitant]
     Active Substance: FOLIC ACID
  9. SYNTHROID [Concomitant]
     Active Substance: LEVOTHYROXINE SODIUM
  10. CARVEDILOL. [Concomitant]
     Active Substance: CARVEDILOL
  11. TORSEMIDE. [Concomitant]
     Active Substance: TORSEMIDE
  12. NTG [Concomitant]
     Active Substance: NITROGLYCERIN
  13. GLUCOPHAGE [Concomitant]
     Active Substance: METFORMIN HYDROCHLORIDE
  14. ACTOS [Concomitant]
     Active Substance: PIOGLITAZONE HYDROCHLORIDE
  15. AMOXICILLIN. [Concomitant]
     Active Substance: AMOXICILLIN
  16. FOSINOPRIL NA [Concomitant]
     Active Substance: FOSINOPRIL SODIUM
  17. TAMSULOSIN [Concomitant]
     Active Substance: TAMSULOSIN
  18. TORSEMIDE. [Suspect]
     Active Substance: TORSEMIDE
     Indication: OEDEMA
     Dosage: ONE TABLET QD ORAL
     Route: 048
  19. LIPITOR [Suspect]
     Active Substance: ATORVASTATIN CALCIUM
  20. BRIMONIDINE [Concomitant]
     Active Substance: BRIMONIDINE\BRIMONIDINE TARTRATE

REACTIONS (14)
  - Cardio-respiratory arrest [None]
  - Diarrhoea [None]
  - Blood glucose increased [None]
  - Renal failure acute [None]
  - Metabolic acidosis [None]
  - International normalised ratio increased [None]
  - Confusional state [None]
  - Blood potassium increased [None]
  - Hypotension [None]
  - Dialysis [None]
  - Bradycardia [None]
  - Anticoagulation drug level above therapeutic [None]
  - Pneumonia [None]
  - Vomiting [None]

NARRATIVE: CASE EVENT DATE: 20130520
